FAERS Safety Report 18728883 (Version 2)
Quarter: 2021Q2

REPORT INFORMATION
  Report Type: Report from Study
  Country: GB (occurrence: GB)
  Receive Date: 20210112
  Receipt Date: 20210428
  Transmission Date: 20210717
  Serious: Yes (Other)
  Sender: FDA-Public Use
  Company Number: GB-JNJFOC-20210115218

PATIENT
  Sex: Female

DRUGS (6)
  1. PARACETAMOL [Concomitant]
     Active Substance: ACETAMINOPHEN
  2. TRAMADOL. [Concomitant]
     Active Substance: TRAMADOL
  3. INSULIN [Concomitant]
     Active Substance: INSULIN NOS
  4. WARFARIN [Concomitant]
     Active Substance: WARFARIN
  5. STELARA [Suspect]
     Active Substance: USTEKINUMAB
     Indication: PSORIASIS
     Route: 058
     Dates: start: 2013
  6. STELARA [Suspect]
     Active Substance: USTEKINUMAB

REACTIONS (2)
  - Lower respiratory tract infection [Not Recovered/Not Resolved]
  - Heart rate increased [Unknown]
